FAERS Safety Report 13492363 (Version 3)
Quarter: 2017Q2

REPORT INFORMATION
  Report Type: Spontaneous
  Country: US (occurrence: US)
  Receive Date: 20170427
  Receipt Date: 20170525
  Transmission Date: 20170830
  Serious: Yes (Other)
  Sender: FDA-Public Use
  Company Number: US-009507513-1704USA009816

PATIENT
  Age: 25 Year
  Sex: Female
  Weight: 68.48 kg

DRUGS (3)
  1. ADDERALL XR [Concomitant]
     Active Substance: AMPHETAMINE ASPARTATE\AMPHETAMINE SULFATE\DEXTROAMPHETAMINE SACCHARATE\DEXTROAMPHETAMINE SULFATE
     Indication: ATTENTION DEFICIT/HYPERACTIVITY DISORDER
     Dosage: 30 MG (XR), QD
     Route: 048
  2. NEXPLANON [Suspect]
     Active Substance: ETONOGESTREL
     Indication: CONTRACEPTION
     Dosage: 1 ROD FOR THREE YEARS
     Route: 059
     Dates: start: 201404, end: 20170407
  3. NEXPLANON [Suspect]
     Active Substance: ETONOGESTREL
     Dosage: 1 DF, UNK
     Route: 059

REACTIONS (8)
  - Tonsillectomy [Unknown]
  - Induced abortion failed [Recovered/Resolved]
  - Abortion induced [Recovered/Resolved]
  - Abortion induced complete [Recovered/Resolved]
  - Menorrhagia [Unknown]
  - Unintended pregnancy [Recovered/Resolved]
  - Pregnancy with contraceptive device [Recovered/Resolved]
  - Wisdom teeth removal [Unknown]

NARRATIVE: CASE EVENT DATE: 2012
